FAERS Safety Report 8927312 (Version 1)
Quarter: 2012Q4

REPORT INFORMATION
  Report Type: 
  Country: US (occurrence: US)
  Receive Date: 20121127
  Receipt Date: 20121127
  Transmission Date: 20130627
  Serious: Yes (Other)
  Sender: FDA-Public Use
  Company Number: US-GLAXOSMITHKLINE-A1003095A

PATIENT
  Sex: Female

DRUGS (1)
  1. BENLYSTA [Suspect]
     Indication: SYSTEMIC LUPUS ERYTHEMATOSUS
     Route: 042

REACTIONS (8)
  - Fatigue [Unknown]
  - Arthritis [Unknown]
  - Memory impairment [Unknown]
  - Confusional state [Unknown]
  - Systemic lupus erythematosus [Unknown]
  - Mental impairment [Unknown]
  - Bronchitis [Recovered/Resolved]
  - Pyrexia [Unknown]
